FAERS Safety Report 4876337-9 (Version None)
Quarter: 2005Q4

REPORT INFORMATION
  Report Type: 
  Country: None (occurrence: None)
  Receive Date: 20051206
  Receipt Date: 20050804
  Transmission Date: 20060501
  Serious: No
  Sender: FDA-Public Use
  Company Number: USA0508104638

PATIENT
  Age: 16 Year
  Sex: Female
  Weight: 136 kg

DRUGS (8)
  1. CYMBALTA [Suspect]
     Indication: DEPRESSION
     Dosage: 30 MG DAY
     Dates: start: 20050801
  2. ZOLOFT [Concomitant]
  3. BUPROPION [Concomitant]
  4. SEROQUEL [Concomitant]
  5. SINGULAIR [Concomitant]
  6. PREVACID [Concomitant]
  7. NORTREL /00407401/ [Concomitant]
  8. CHOLESTEROL [Concomitant]

REACTIONS (2)
  - EXCORIATION [None]
  - PRURITUS [None]
